FAERS Safety Report 10174421 (Version 3)
Quarter: 2014Q2

REPORT INFORMATION
  Report Type: Spontaneous
  Country: TW (occurrence: TW)
  Receive Date: 20140515
  Receipt Date: 20140626
  Transmission Date: 20141212
  Serious: Yes (Hospitalization)
  Sender: FDA-Public Use
  Company Number: TW-JNJFOC-20140506922

PATIENT
  Age: 62 Year
  Sex: Male
  Weight: 60 kg

DRUGS (3)
  1. SIMPONI [Suspect]
     Indication: PSORIATIC ARTHROPATHY
     Dosage: APPROXIMATE TOTAL NUMBERS OF INJECTIONS PATIENT RECEIVED 6
     Route: 058
     Dates: start: 20131204, end: 20140416
  2. METHOTREXATE [Suspect]
     Indication: PSORIATIC ARTHROPATHY
     Route: 065
     Dates: start: 20130508, end: 20140511
  3. CELEBREX [Suspect]
     Indication: PSORIATIC ARTHROPATHY
     Route: 065
     Dates: start: 20130508, end: 20140511

REACTIONS (5)
  - Respiratory failure [Recovering/Resolving]
  - Shock [Recovering/Resolving]
  - Hepatic function abnormal [Unknown]
  - Pneumonia [Recovering/Resolving]
  - Pulmonary tuberculosis [Recovering/Resolving]
